FAERS Safety Report 5841248-9 (Version None)
Quarter: 2008Q3

REPORT INFORMATION
  Report Type: 
  Country: None (occurrence: None)
  Receive Date: 20080812
  Receipt Date: 20080807
  Transmission Date: 20090109
  Serious: Yes (Hospitalization, Other)
  Sender: FDA-Public Use
  Company Number: DE-BRISTOL-MYERS SQUIBB COMPANY-14294524

PATIENT
  Age: 60 Year
  Sex: Male

DRUGS (1)
  1. BARACLUDE [Suspect]
     Dosage: ADMINISTERED FOR 8 DAYS

REACTIONS (3)
  - LACTIC ACIDOSIS [None]
  - PNEUMONIA [None]
  - RENAL IMPAIRMENT [None]
